FAERS Safety Report 9982558 (Version 1)
Quarter: 2014Q1

REPORT INFORMATION
  Report Type: Report from Study
  Country: US (occurrence: US)
  Receive Date: 20140307
  Receipt Date: 20140307
  Transmission Date: 20141002
  Serious: No
  Sender: FDA-Public Use
  Company Number: US-ABBVIE-13P-163-1180788-00

PATIENT
  Age: 64 Year
  Sex: Female

DRUGS (21)
  1. HUMIRA [Suspect]
     Indication: CROHN^S DISEASE
     Dosage: LOADING DOSE
     Dates: start: 20131031, end: 20131031
  2. HUMIRA [Suspect]
     Dosage: LOADING DOSE
  3. HUMIRA [Suspect]
     Dosage: MAINTENANCE DOSE
  4. GENERIC EFFEXOR [Concomitant]
     Indication: BIPOLAR DISORDER
  5. LAMICTAL [Concomitant]
     Indication: BIPOLAR DISORDER
  6. GENERIC VALCYCLOVIR [Concomitant]
     Indication: ORAL HERPES
  7. DEXILANT [Concomitant]
     Indication: GASTROOESOPHAGEAL REFLUX DISEASE
     Dosage: JUST CHANGED TO GENERIC PROTONIX DUE TO INSURANCE
  8. GENERIC PROTONIX [Concomitant]
     Indication: GASTROOESOPHAGEAL REFLUX DISEASE
  9. LOSARTAN [Concomitant]
     Indication: HYPERTENSION
  10. DESYREL [Concomitant]
     Indication: INSOMNIA
  11. GENERIC DALMAIN [Concomitant]
     Indication: INSOMNIA
     Dosage: AT BEDTIME
  12. SYNTHROID [Concomitant]
     Indication: HYPOTHYROIDISM
  13. ASPIRIN [Concomitant]
     Indication: ISCHAEMIC HEART DISEASE PROPHYLAXIS
  14. PRAVASTATIN [Concomitant]
     Indication: BLOOD CHOLESTEROL INCREASED
  15. B-12 [Concomitant]
     Indication: VITAMIN SUPPLEMENTATION
  16. FISH OIL [Concomitant]
     Indication: VITAMIN SUPPLEMENTATION
  17. CALCIUM CITRATE [Concomitant]
     Indication: MINERAL SUPPLEMENTATION
  18. RESTASIS [Concomitant]
     Indication: DRY EYE
     Dosage: EYE DROPS
  19. REFRESH [Concomitant]
     Indication: DRY EYE
     Dosage: EYE DROPS
  20. DILAUDID [Concomitant]
     Indication: MIGRAINE
  21. HYDROCODONE [Concomitant]
     Indication: MIGRAINE

REACTIONS (2)
  - Migraine [Not Recovered/Not Resolved]
  - Rhinorrhoea [Unknown]
